FAERS Safety Report 20532126 (Version 1)
Quarter: 2022Q1

REPORT INFORMATION
  Report Type: Spontaneous
  Country: US (occurrence: None)
  Receive Date: 20220301
  Receipt Date: 20220301
  Transmission Date: 20220423
  Serious: Yes (Hospitalization)
  Sender: FDA-Public Use
  Company Number: None

PATIENT
  Age: 81 Year
  Sex: Male
  Weight: 89.1 kg

DRUGS (2)
  1. CARBOPLATIN [Suspect]
     Active Substance: CARBOPLATIN
     Dates: end: 20220216
  2. TAXOL [Suspect]
     Active Substance: PACLITAXEL
     Dates: end: 20220216

REACTIONS (3)
  - Loss of consciousness [None]
  - Atrial fibrillation [None]
  - Syncope [None]

NARRATIVE: CASE EVENT DATE: 20220220
